FAERS Safety Report 17156817 (Version 1)
Quarter: 2019Q4

REPORT INFORMATION
  Report Type: Spontaneous
  Country: US (occurrence: US)
  Receive Date: 20191216
  Receipt Date: 20191216
  Transmission Date: 20200122
  Serious: Yes (Hospitalization)
  Sender: FDA-Public Use
  Company Number: US-EMCURE PHARMACEUTICALS LTD-2019-EPL-1181

PATIENT
  Age: 27 Year
  Sex: Male

DRUGS (2)
  1. ACYCLOVIR. [Suspect]
     Active Substance: ACYCLOVIR
     Dosage: INCREASED TO 15 MG/KG EVERY 8 HOURS
     Route: 042
  2. ACYCLOVIR. [Suspect]
     Active Substance: ACYCLOVIR
     Indication: HERPES SIMPLEX
     Dosage: 10 MG/KG, EVERY 8 HOUR
     Route: 042

REACTIONS (7)
  - Neurotoxicity [Recovering/Resolving]
  - Disorientation [Recovering/Resolving]
  - Echopraxia [Recovering/Resolving]
  - Mental status changes [Recovering/Resolving]
  - Hepatic encephalopathy [Unknown]
  - Confusional state [Recovering/Resolving]
  - Hyperammonaemia [Unknown]
